FAERS Safety Report 5427108-6 (Version None)
Quarter: 2007Q3

REPORT INFORMATION
  Report Type: 
  Country: None (occurrence: None)
  Receive Date: 20070823
  Receipt Date: 20070823
  Transmission Date: 20080115
  Serious: Yes (Hospitalization)
  Sender: FDA-Public Use
  Company Number: None

PATIENT
  Sex: Female
  Weight: 47.7 kg

DRUGS (13)
  1. RIFAMPICIN [Suspect]
     Indication: TUBERCULOSIS
     Dosage: 600MG PO DAILY
     Route: 048
     Dates: start: 20061210, end: 20061228
  2. RIFAMPICIN [Suspect]
     Indication: TUBERCULOSIS
     Dosage: 600MG PO DAILY
     Route: 048
     Dates: start: 20061230, end: 20070103
  3. FUROSEMIDE [Concomitant]
  4. SENNA [Concomitant]
  5. DOCUSATE [Concomitant]
  6. LEVOFLOXACIN [Concomitant]
  7. ACETAMINOPHEN [Concomitant]
  8. METOCLOPRAMIDE [Concomitant]
  9. LORAZEPAM [Concomitant]
  10. PYRINZINAMIDE [Concomitant]
  11. ETHAMBUTOL HYDROCHLORIDE [Concomitant]
  12. INH [Concomitant]
  13. LINEZOLID [Concomitant]

REACTIONS (3)
  - ABDOMINAL PAIN UPPER [None]
  - BLOOD BILIRUBIN INCREASED [None]
  - PULMONARY TUBERCULOSIS [None]
